FAERS Safety Report 18498362 (Version 4)
Quarter: 2020Q4

REPORT INFORMATION
  Report Type: Report from Study
  Country: CO (occurrence: CO)
  Receive Date: 20201112
  Receipt Date: 20201223
  Transmission Date: 20210114
  Serious: Yes (Life-Threatening)
  Sender: FDA-Public Use
  Company Number: CO-TAKEDA-CO202016045

PATIENT
  Age: 43 Year
  Sex: Female
  Weight: 64 kg

DRUGS (12)
  1. ICATIBANT [Suspect]
     Active Substance: ICATIBANT ACETATE
     Dosage: 30 MILLIGRAM, UP TO 3 SYRINGES IN 24 HOURS
     Route: 058
     Dates: start: 20200907, end: 20200908
  2. ICATIBANT [Suspect]
     Active Substance: ICATIBANT ACETATE
     Dosage: 30 MILLIGRAM, UP TO 3 SYRINGES IN 24 HOURS
     Route: 058
     Dates: start: 20170929
  3. ICATIBANT [Suspect]
     Active Substance: ICATIBANT ACETATE
     Dosage: 30 MILLIGRAM, UP TO 3 SYRINGES IN 24 HOURS
     Route: 058
     Dates: start: 20200722
  4. ICATIBANT [Suspect]
     Active Substance: ICATIBANT ACETATE
     Dosage: 30 MILLIGRAM, UP TO 3 SYRINGES IN 24 HOURS
     Route: 058
  5. ICATIBANT [Suspect]
     Active Substance: ICATIBANT ACETATE
     Indication: HEREDITARY ANGIOEDEMA
     Dosage: 30 MILLIGRAM, UP TO 3 SYRINGES IN 24 HOURS
     Route: 058
     Dates: start: 20170929
  6. ICATIBANT [Suspect]
     Active Substance: ICATIBANT ACETATE
     Dosage: 30 MILLIGRAM, UP TO 3 SYRINGES IN 24 HOURS
     Route: 058
     Dates: start: 20170929
  7. ICATIBANT [Suspect]
     Active Substance: ICATIBANT ACETATE
     Dosage: 30 MILLIGRAM, UP TO 3 SYRINGES IN 24 HOURS
     Route: 058
     Dates: start: 20200605, end: 20200606
  8. ICATIBANT [Suspect]
     Active Substance: ICATIBANT ACETATE
     Dosage: 30 MILLIGRAM, UP TO 3 SYRINGES IN 24 HOURS
     Route: 058
     Dates: start: 20200907, end: 20200908
  9. ICATIBANT [Suspect]
     Active Substance: ICATIBANT ACETATE
     Dosage: 30 MILLIGRAM, UP TO 3 SYRINGES IN 24 HOURS
     Route: 058
  10. ICATIBANT [Suspect]
     Active Substance: ICATIBANT ACETATE
     Indication: HEREDITARY ANGIOEDEMA
     Dosage: 30 MILLIGRAM, UP TO 3 SYRINGES IN 24 HOURS
     Route: 058
     Dates: start: 20170929
  11. ICATIBANT [Suspect]
     Active Substance: ICATIBANT ACETATE
     Dosage: 30 MILLIGRAM, UP TO 3 SYRINGES IN 24 HOURS
     Route: 058
     Dates: start: 20200605, end: 20200606
  12. ICATIBANT [Suspect]
     Active Substance: ICATIBANT ACETATE
     Dosage: 30 MILLIGRAM, UP TO 3 SYRINGES IN 24 HOURS
     Route: 058
     Dates: start: 20200722

REACTIONS (4)
  - Inflammation [Recovered/Resolved]
  - Pain [Not Recovered/Not Resolved]
  - Hereditary angioedema [Recovered/Resolved]
  - Rash pruritic [Not Recovered/Not Resolved]

NARRATIVE: CASE EVENT DATE: 20200818
